FAERS Safety Report 7705190-0 (Version None)
Quarter: 2011Q3

REPORT INFORMATION
  Report Type: 
  Country: None (occurrence: None)
  Receive Date: 20110824
  Receipt Date: 20110810
  Transmission Date: 20111222
  Serious: Yes (Hospitalization)
  Sender: FDA-Public Use
  Company Number: US-JNJFOC-20110402912

PATIENT
  Age: 58 Year
  Sex: Female
  Weight: 68.04 kg

DRUGS (3)
  1. E-VITAMIN [Concomitant]
  2. HORMONE PILL [Concomitant]
  3. EXTRA STRENGTH TYLENOL PM [Suspect]
     Indication: INSOMNIA
     Dosage: 1/2 CAPLET
     Route: 048
     Dates: start: 20110329, end: 20110329

REACTIONS (6)
  - DIZZINESS [None]
  - HEART RATE DECREASED [None]
  - SOMNOLENCE [None]
  - HYPOAESTHESIA [None]
  - HYPOTENSION [None]
  - PRODUCT QUALITY ISSUE [None]
